FAERS Safety Report 5230395-0 (Version None)
Quarter: 2007Q1

REPORT INFORMATION
  Report Type: 
  Country: None (occurrence: None)
  Receive Date: 20070201
  Receipt Date: 20070119
  Transmission Date: 20070707
  Serious: Yes (Hospitalization)
  Sender: FDA-Public Use
  Company Number: 2007JP000270

PATIENT
  Age: 79 Year
  Sex: Male

DRUGS (8)
  1. PROGRAF [Suspect]
     Indication: RHEUMATOID ARTHRITIS
     Dosage: 3 MG, D, ORAL
     Route: 048
     Dates: start: 20060830, end: 20061227
  2. PREDNISONE [Suspect]
     Dosage: 10 MG, D, ORAL
     Route: 048
  3. ANPLAG (SARPOGRELATE HYDROCHLORIDE) [Concomitant]
  4. METHYCOBAL (MECOBALAMIN) [Concomitant]
  5. MUCOSTA (REBAMIPIDE) [Concomitant]
  6. .. [Concomitant]
  7. .. [Concomitant]
  8. .. [Concomitant]

REACTIONS (2)
  - BLOOD CREATINE INCREASED [None]
  - PULMONARY TUBERCULOSIS [None]
